FAERS Safety Report 22125293 (Version 1)
Quarter: 2023Q1

REPORT INFORMATION
  Report Type: Report from Study
  Country: IT (occurrence: IT)
  Receive Date: 20230322
  Receipt Date: 20230322
  Transmission Date: 20230417
  Serious: Yes (Other)
  Sender: FDA-Public Use
  Company Number: None

PATIENT
  Age: 46 Year
  Sex: Female

DRUGS (5)
  1. EMGALITY [Suspect]
     Active Substance: GALCANEZUMAB-GNLM
     Indication: Migraine
     Dosage: 120 MG, MONTHLY (1/M)
     Route: 058
  2. LEVOTHYROXINE SODIUM [Concomitant]
     Active Substance: LEVOTHYROXINE SODIUM
     Indication: Hypothyroidism
     Dosage: DOSAGGIO: 50 UNITA DI MISURA: MICROGRAMMI VIA SOMMINISTRAZIONE: ORALE
     Route: 048
  3. LOSARTAN POTASSICO [Concomitant]
     Indication: Product used for unknown indication
     Dosage: DOSAGGIO: 50 UNITA DI MISURA: MILLIGRAMMI VIA SOMMINISTRAZIONE: ORALE
     Route: 048
  4. ATORVASTATIN [Concomitant]
     Active Substance: ATORVASTATIN
     Indication: Hypercholesterolaemia
     Dosage: DOSAGGIO: 10 UNITA DI MISURA: MILLIGRAMMI VIA SOMMINISTRAZIONE: ORALE
     Route: 048
  5. LEVOSULPIRIDE [Concomitant]
     Active Substance: LEVOSULPIRIDE
     Indication: Product used for unknown indication
     Dosage: UNK UNK, UNKNOWN
     Route: 065

REACTIONS (2)
  - Vertigo [Recovering/Resolving]
  - Vertigo [Recovered/Resolved]

NARRATIVE: CASE EVENT DATE: 20220713
